FAERS Safety Report 5572473-2 (Version None)
Quarter: 2007Q4

REPORT INFORMATION
  Report Type: 
  Country: None (occurrence: None)
  Receive Date: 20071219
  Receipt Date: 20071210
  Transmission Date: 20080405
  Serious: Yes (Life-Threatening, Other)
  Sender: FDA-Public Use
  Company Number: APP200700341

PATIENT
  Age: 10 Month
  Sex: Female

DRUGS (1)
  1. CEFTRIAXONE [Suspect]
     Indication: MENINGOCOCCAL SEPSIS
     Dosage: INTRAVENOUS
     Route: 042

REACTIONS (3)
  - BACTERIA STOOL IDENTIFIED [None]
  - ESCHERICHIA INFECTION [None]
  - HAEMOLYTIC URAEMIC SYNDROME [None]
